FAERS Safety Report 21551601 (Version 1)
Quarter: 2022Q4

REPORT INFORMATION
  Report Type: Spontaneous
  Country: IN (occurrence: IN)
  Receive Date: 20221103
  Receipt Date: 20221103
  Transmission Date: 20230113
  Serious: Yes (Death, Hospitalization, Other)
  Sender: FDA-Public Use
  Company Number: IN-AMGEN-INDSP2022185840

PATIENT

DRUGS (2)
  1. FILGRASTIM [Suspect]
     Active Substance: FILGRASTIM
     Indication: Hepatic cirrhosis
     Dosage: UNK
     Route: 065
  2. FILGRASTIM [Suspect]
     Active Substance: FILGRASTIM
     Indication: Prophylaxis

REACTIONS (27)
  - Death [Fatal]
  - Multiple organ dysfunction syndrome [Fatal]
  - Haemorrhage intracranial [Fatal]
  - Intracranial pressure increased [Fatal]
  - Sepsis [Fatal]
  - Acute kidney injury [Unknown]
  - Urinary tract infection [Unknown]
  - Hepatic encephalopathy [Unknown]
  - Peritonitis bacterial [Unknown]
  - Cellulitis [Unknown]
  - Pneumonia [Unknown]
  - Empyema [Unknown]
  - Ascites [Unknown]
  - Angiopathy [Unknown]
  - Abdominal pain [Unknown]
  - Adverse event [Unknown]
  - Child-Pugh-Turcotte score increased [Unknown]
  - Gastroenteritis [Unknown]
  - Impaired quality of life [Unknown]
  - Pain [Unknown]
  - Back pain [Unknown]
  - Headache [Unknown]
  - Pyrexia [Unknown]
  - Vomiting [Unknown]
  - Diarrhoea [Unknown]
  - Pain in extremity [Unknown]
  - Drug effective for unapproved indication [Unknown]
